FAERS Safety Report 5221012-4 (Version None)
Quarter: 2007Q1

REPORT INFORMATION
  Report Type: 
  Country: None (occurrence: None)
  Receive Date: 20070124
  Receipt Date: 20061204
  Transmission Date: 20070707
  Serious: No
  Sender: FDA-Public Use
  Company Number: DL2006488

PATIENT
  Age: 24 Year
  Sex: Female

DRUGS (2)
  1. MIFEPRISTONE TABLETS, 200 MG (DANCO LABS) [Suspect]
     Indication: ABORTION INDUCED
     Dosage: 200 MG, ORAL
     Route: 048
     Dates: start: 20061111
  2. MISOPROSTOL [Suspect]
     Dosage: 800 MCG, BUCCA
     Route: 002
     Dates: start: 20061112

REACTIONS (1)
  - ABORTION INCOMPLETE [None]
